FAERS Safety Report 24114230 (Version 1)
Quarter: 2024Q3

REPORT INFORMATION
  Report Type: Spontaneous
  Country: NL (occurrence: NL)
  Receive Date: 20240720
  Receipt Date: 20240720
  Transmission Date: 20241016
  Serious: Yes (Life-Threatening, Other)
  Sender: AUROBINDO
  Company Number: NL-LRB-00979131

PATIENT
  Age: 62 Year
  Sex: Male
  Weight: 84 kg

DRUGS (1)
  1. BUPIVACAINE [Suspect]
     Active Substance: BUPIVACAINE
     Indication: Hip fracture
     Dosage: UNK
     Route: 065
     Dates: start: 20240312

REACTIONS (4)
  - Pulmonary embolism [Recovering/Resolving]
  - Diplegia [Recovered/Resolved]
  - Thrombosis [Recovering/Resolving]
  - Therapeutic product effect prolonged [Recovered/Resolved]
